FAERS Safety Report 9366672 (Version 2)
Quarter: 2013Q3

REPORT INFORMATION
  Report Type: Spontaneous
  Country: FR (occurrence: FR)
  Receive Date: 20130625
  Receipt Date: 20130904
  Transmission Date: 20140515
  Serious: Yes (Death)
  Sender: FDA-Public Use
  Company Number: FR-TEVA-415087ISR

PATIENT
  Age: 73 Year
  Sex: Male
  Weight: 76 kg

DRUGS (13)
  1. FUROSEMIDE TEVA 40 MG [Suspect]
     Indication: CARDIAC FAILURE
     Dosage: 80 MILLIGRAM DAILY; DURATION ABOUT ONE YEAR
     Route: 048
     Dates: end: 20130605
  2. ALDACTONE [Concomitant]
     Indication: CARDIAC FAILURE
     Dosage: 25 MILLIGRAM DAILY; FOR SEVERAL YEARS
     Route: 048
  3. ATACAND 8 MG [Concomitant]
     Indication: CARDIAC FAILURE
     Dosage: 8 MILLIGRAM DAILY; FOR SEVERAL YEARS
     Route: 048
  4. TEMERIT [Concomitant]
     Indication: CARDIAC FAILURE
     Dosage: 5 MILLIGRAM DAILY; FOR SEVERAL YEARS
  5. PREVISCAN [Concomitant]
     Indication: CARDIOVASCULAR DISORDER
     Dosage: .75 DOSAGE FORMS DAILY; FOR SEVERAL YEARS
     Route: 048
  6. QVAR AUTOHALER [Concomitant]
     Indication: ASTHMA
     Dosage: 4 DOSAGE FORMS DAILY;
  7. AIROMIR [Concomitant]
     Indication: ASTHMA
     Dosage: 4 DOSAGE FORMS DAILY;
  8. NOCTAMIDE [Concomitant]
     Dosage: 1 TABLET DAILY;
     Route: 048
  9. OMEPRAZOLE 10MG [Concomitant]
     Dosage: 10 MILLIGRAM DAILY;
     Route: 048
  10. MONTELUKAST [Concomitant]
     Indication: ASTHMA
     Dosage: 10 MILLIGRAM DAILY;
     Route: 048
     Dates: start: 20121204
  11. EBIXA 20MG [Concomitant]
     Indication: DEMENTIA ALZHEIMER^S TYPE
     Dosage: 20 MILLIGRAM DAILY;
     Route: 048
     Dates: start: 20130429
  12. SPIRIVA [Concomitant]
     Indication: ASTHMA
     Dosage: 1 DOSAGE FORMS DAILY;
  13. FORADIL [Concomitant]
     Indication: ASTHMA
     Dosage: 2 DOSAGE FORMS DAILY;

REACTIONS (3)
  - Asthmatic crisis [Fatal]
  - Myocardial infarction [Fatal]
  - Cardiac failure [Fatal]
